FAERS Safety Report 5213206-9 (Version None)
Quarter: 2007Q1

REPORT INFORMATION
  Report Type: 
  Country: None (occurrence: None)
  Receive Date: 20070119
  Receipt Date: 20070112
  Transmission Date: 20070707
  Serious: Yes (Other)
  Sender: FDA-Public Use
  Company Number: GR-GLAXOSMITHKLINE-B0454592A

PATIENT
  Age: 63 Year
  Sex: Female

DRUGS (4)
  1. AUGMENTIN '125' [Suspect]
     Route: 048
     Dates: start: 20061011, end: 20061011
  2. SEREVENT [Concomitant]
     Route: 055
  3. FLIXOTIDE [Concomitant]
     Route: 055
  4. NASONEX [Concomitant]
     Route: 055

REACTIONS (6)
  - DIZZINESS [None]
  - FACE OEDEMA [None]
  - FLUSHING [None]
  - PRURITUS [None]
  - RASH [None]
  - VOMITING [None]
